FAERS Safety Report 6013329-0 (Version None)
Quarter: 2008Q4

REPORT INFORMATION
  Report Type: 
  Country: None (occurrence: None)
  Receive Date: 20081216
  Receipt Date: 20080805
  Transmission Date: 20090506
  Serious: Yes (Other)
  Sender: FDA-Public Use
  Company Number: US-WYE-H05427108

PATIENT
  Age: 36 Year
  Sex: Female
  Weight: 56.75 kg

DRUGS (12)
  1. EFFEXOR XR [Suspect]
     Indication: ANXIETY
     Dosage: 150 MG 1X PER 1 DAY, ORAL
     Route: 048
     Dates: start: 20060520
  2. EFFEXOR XR [Suspect]
     Indication: DEPRESSION
     Dosage: 150 MG 1X PER 1 DAY, ORAL
     Route: 048
     Dates: start: 20060520
  3. ZYPREXA [Concomitant]
  4. SEROQUEL [Concomitant]
  5. ATIVAN [Concomitant]
  6. TOPAMAX [Concomitant]
  7. LYRICA [Concomitant]
  8. AMBIEN [Concomitant]
  9. PHENERGAN HCL [Concomitant]
  10. LACTULOSE [Concomitant]
  11. ASPIRIN [Concomitant]
  12. BC (ACETYLSALICYLIC ACID/CAFFEINE/SALICYLAMIDE) [Concomitant]

REACTIONS (1)
  - DRUG SCREEN FALSE POSITIVE [None]
